FAERS Safety Report 9774237 (Version 2)
Quarter: 2013Q4

REPORT INFORMATION
  Report Type: Spontaneous
  Country: FR (occurrence: FR)
  Receive Date: 20131220
  Receipt Date: 20131224
  Transmission Date: 20140711
  Serious: Yes (Other)
  Sender: FDA-Public Use
  Company Number: FR-JNJFOC-20131208206

PATIENT
  Age: 49 Year
  Sex: Male

DRUGS (2)
  1. XARELTO [Suspect]
     Indication: PULMONARY EMBOLISM
     Route: 048
     Dates: start: 201209, end: 20131030
  2. XARELTO [Suspect]
     Indication: THROMBOSIS PROPHYLAXIS
     Route: 048
     Dates: start: 201209, end: 20131030

REACTIONS (2)
  - Creatinine renal clearance decreased [Recovered/Resolved]
  - Oedema peripheral [Recovered/Resolved]
